FAERS Safety Report 5928068-1 (Version None)
Quarter: 2008Q4

REPORT INFORMATION
  Report Type: 
  Country: None (occurrence: None)
  Receive Date: 20081023
  Receipt Date: 20081017
  Transmission Date: 20090506
  Serious: Yes (Hospitalization)
  Sender: FDA-Public Use
  Company Number: A0753349A

PATIENT
  Age: 55 Year
  Sex: Male
  Weight: 100 kg

DRUGS (7)
  1. AVANDIA [Suspect]
     Indication: TYPE 2 DIABETES MELLITUS
     Dosage: 4MG TWICE PER DAY
     Route: 048
     Dates: end: 20070101
  2. METFORMIN [Concomitant]
     Dates: start: 19950101
  3. STARLIX [Concomitant]
     Dates: start: 19950101
  4. ZOCOR [Concomitant]
     Dates: start: 19970101, end: 20080101
  5. NITROGLYCERIN [Concomitant]
  6. ASPIRIN [Concomitant]
  7. RAMIPRIL [Concomitant]

REACTIONS (3)
  - DEPRESSION [None]
  - HYPERTENSION [None]
  - MYOCARDIAL INFARCTION [None]
